FAERS Safety Report 10629019 (Version 1)
Quarter: 2014Q4

REPORT INFORMATION
  Report Type: Spontaneous
  Country: US (occurrence: US)
  Receive Date: 20141205
  Receipt Date: 20141205
  Transmission Date: 20150529
  Serious: No
  Sender: FDA-Public Use
  Company Number: US-BRISTOL-MYERS SQUIBB COMPANY-21527007

PATIENT
  Age: 64 Year
  Sex: Female

DRUGS (1)
  1. KENALOG-10 [Suspect]
     Active Substance: TRIAMCINOLONE ACETONIDE
     Indication: TENDON SHEATH LESION EXCISION
     Dosage: 1 DF= ONE INJECTION

REACTIONS (5)
  - Injection site swelling [Unknown]
  - Burning sensation [Unknown]
  - Dry skin [Unknown]
  - Blister [Unknown]
  - Injection site erythema [Unknown]

NARRATIVE: CASE EVENT DATE: 201408
